FAERS Safety Report 7126953-9 (Version None)
Quarter: 2010Q4

REPORT INFORMATION
  Report Type: 
  Country: None (occurrence: None)
  Receive Date: 20101129
  Receipt Date: 20091203
  Transmission Date: 20110411
  Serious: No
  Sender: FDA-Public Use
  Company Number: US-PFIZER INC-2009306838

PATIENT
  Sex: Male
  Weight: 74.8 kg

DRUGS (14)
  1. VIAGRA [Suspect]
     Dosage: UNK
     Route: 048
  2. SIMVASTATIN [Concomitant]
     Indication: BLOOD CHOLESTEROL INCREASED
     Dosage: 40 MG, 1X/DAY
     Route: 048
  3. ACIPHEX [Concomitant]
     Indication: HYPERCHLORHYDRIA
     Dosage: 20 MG, 1X/DAY
     Route: 048
  4. COENZYME Q10 [Concomitant]
     Indication: IMMUNE SYSTEM DISORDER
     Dosage: 50 MG, 2X/DAY
     Route: 048
  5. ACETYLSALICYLIC ACID [Concomitant]
     Dosage: 81 MG, 1X/DAY
     Route: 048
  6. OMEGA-3 TRIGLYCERIDES [Concomitant]
     Dosage: UNK
     Route: 048
  7. ASCORBIC ACID [Concomitant]
     Dosage: 500 MG, 2X/DAY
     Route: 048
  8. VITAMIN D [Concomitant]
     Dosage: UNK
     Route: 048
  9. CLONAZEPAM [Concomitant]
     Dosage: 2 MG, 2X/DAY
     Route: 048
  10. DOVONEX [Concomitant]
     Indication: PSORIASIS
     Dosage: UNK
  11. DEHYDROEPIANDROSTERONE [Concomitant]
     Dosage: 50 MG, 1X/DAY
  12. CLOBETASOL PROPIONATE [Concomitant]
     Indication: PSORIASIS
     Dosage: UNK
     Route: 061
  13. FOLIC ACID [Concomitant]
     Dosage: 1 MG, 1X/DAY
     Route: 048
  14. BUPROPION HYDROCHLORIDE [Concomitant]
     Indication: BIPOLAR I DISORDER
     Dosage: 300 MG, 1X/DAY
     Route: 048

REACTIONS (1)
  - CYANOPSIA [None]
